FAERS Safety Report 8793009 (Version 2)
Quarter: 2015Q1

REPORT INFORMATION
  Report Type: Report from Study
  Country: US (occurrence: US)
  Receive Date: 20120918
  Receipt Date: 20150314
  Transmission Date: 20150721
  Serious: Yes (Death)
  Sender: FDA-Public Use
  Company Number: US-ROCHE-1104187

PATIENT
  Sex: Female

DRUGS (11)
  1. AVASTIN [Suspect]
     Active Substance: BEVACIZUMAB
     Indication: BRAIN NEOPLASM MALIGNANT
     Route: 042
     Dates: start: 20070718
  2. IRINOTECAN [Concomitant]
     Active Substance: IRINOTECAN
     Route: 042
  3. AVASTIN [Suspect]
     Active Substance: BEVACIZUMAB
     Route: 042
  4. ALOXI [Concomitant]
     Active Substance: PALONOSETRON HYDROCHLORIDE
     Route: 042
  5. ATIVAN [Concomitant]
     Active Substance: LORAZEPAM
     Route: 048
  6. ZOFRAN [Concomitant]
     Active Substance: ONDANSETRON HYDROCHLORIDE
     Route: 042
  7. DECADRON [Concomitant]
     Active Substance: DEXAMETHASONE
     Route: 042
  8. CPT-11 [Concomitant]
     Active Substance: IRINOTECAN
     Route: 042
  9. DECADRON [Concomitant]
     Active Substance: DEXAMETHASONE
     Route: 042
  10. PHENERGAN [Concomitant]
     Active Substance: PROMETHAZINE HYDROCHLORIDE
     Dosage: EVERY 6 HOURS
     Route: 065
  11. ATROPINE [Concomitant]
     Active Substance: ATROPINE
     Route: 042

REACTIONS (15)
  - Malaise [Unknown]
  - Musculoskeletal pain [Unknown]
  - Blood ketone body [Unknown]
  - Headache [Unknown]
  - Death [Fatal]
  - Nausea [Unknown]
  - Hypoaesthesia [Unknown]
  - Diarrhoea [Unknown]
  - Chest pain [Unknown]
  - Discomfort [Unknown]
  - Paraesthesia [Unknown]
  - Protein total [Unknown]
  - Weight decreased [Unknown]
  - Off label use [Unknown]
  - Balance disorder [Unknown]
